FAERS Safety Report 19068783 (Version 1)
Quarter: 2021Q1

REPORT INFORMATION
  Report Type: Spontaneous
  Country: US (occurrence: US)
  Receive Date: 20210327
  Receipt Date: 20210327
  Transmission Date: 20210420
  Serious: No
  Sender: FDA-Public Use
  Company Number: None

PATIENT
  Age: 78 Year
  Sex: Female

DRUGS (15)
  1. COLLAGEN [Concomitant]
     Active Substance: COLLAGEN
  2. MELATONIN [Concomitant]
     Active Substance: MELATONIN
  3. XGEVA [Concomitant]
     Active Substance: DENOSUMAB
  4. VITAMIN D3 [Concomitant]
     Active Substance: CHOLECALCIFEROL
  5. IBUPROFEN. [Concomitant]
     Active Substance: IBUPROFEN
  6. CALCIUM MAGNESIUM 750 [Concomitant]
  7. FASLODEX [Concomitant]
     Active Substance: FULVESTRANT
  8. BIOTIN [Concomitant]
     Active Substance: BIOTIN
  9. HAIR SKIN AND NAILS FORMU [Concomitant]
  10. VITAMIN C [Concomitant]
     Active Substance: ASCORBIC ACID
  11. IBUPROFEN. [Concomitant]
     Active Substance: IBUPROFEN
  12. CATS CLAW [Concomitant]
  13. STOOL SOFTNER [Concomitant]
  14. PIQRAY [Suspect]
     Active Substance: ALPELISIB
     Indication: NEOPLASM MALIGNANT
     Route: 048
     Dates: start: 20201111
  15. IRON [Concomitant]
     Active Substance: IRON

REACTIONS (3)
  - Pain in extremity [None]
  - Inflammation [None]
  - Skin exfoliation [None]
